FAERS Safety Report 16687012 (Version 4)
Quarter: 2019Q4

REPORT INFORMATION
  Report Type: Report from Study
  Country: US (occurrence: US)
  Receive Date: 20190809
  Receipt Date: 20191107
  Transmission Date: 20200122
  Serious: Yes (Hospitalization, Other)
  Sender: FDA-Public Use
  Company Number: US-TESAROUBC-2018-TSO1816-US

PATIENT
  Age: 54 Year
  Sex: Female
  Weight: 107.71 kg

DRUGS (9)
  1. NIRAPARIB [Suspect]
     Active Substance: NIRAPARIB
     Dosage: 100 MG (1 CAP DAILY)
     Route: 048
  2. NIRAPARIB [Suspect]
     Active Substance: NIRAPARIB
     Dosage: 100 MG, QD
     Route: 048
  3. NIRAPARIB [Suspect]
     Active Substance: NIRAPARIB
     Dosage: 100 MG, QOD
     Route: 048
  4. NIRAPARIB [Suspect]
     Active Substance: NIRAPARIB
     Indication: MALIGNANT NEOPLASM OF UTERINE ADNEXA
     Dosage: 200 MG, QPM WITH OR WITHOUT FOOD
     Route: 048
     Dates: start: 20181109
  5. IBUPROFEN. [Concomitant]
     Active Substance: IBUPROFEN
     Indication: PRODUCT USED FOR UNKNOWN INDICATION
     Dosage: UNK
  6. TYLENOL [Concomitant]
     Active Substance: ACETAMINOPHEN
     Indication: PRODUCT USED FOR UNKNOWN INDICATION
     Dosage: UNK
  7. NIRAPARIB [Suspect]
     Active Substance: NIRAPARIB
     Dosage: 100MG ALTERNATING WITH 200 MG EVERY OTHER DAY
     Route: 048
     Dates: end: 20190725
  8. NIRAPARIB [Suspect]
     Active Substance: NIRAPARIB
     Dosage: 100 MG ALTERNATING WITH 200 MG EVERY OTHER DAY
     Route: 048
  9. NIRAPARIB [Suspect]
     Active Substance: NIRAPARIB
     Dosage: 100 MG ALTERNATING WITH 200 MG EVERY OTHER DAY
     Route: 048
     Dates: start: 20190813

REACTIONS (11)
  - Hospitalisation [Unknown]
  - Anaemia [Not Recovered/Not Resolved]
  - Colostomy closure [Unknown]
  - Drug intolerance [Unknown]
  - Insomnia [Unknown]
  - Inappropriate schedule of product administration [Unknown]
  - Nausea [Unknown]
  - Laboratory test abnormal [Unknown]
  - Abdominal operation [Unknown]
  - Gastric disorder [Unknown]
  - Hernia repair [Unknown]

NARRATIVE: CASE EVENT DATE: 201811
